FAERS Safety Report 20985858 (Version 1)
Quarter: 2022Q2

REPORT INFORMATION
  Report Type: Spontaneous
  Country: CA (occurrence: CA)
  Receive Date: 20220621
  Receipt Date: 20220621
  Transmission Date: 20220720
  Serious: Yes (Other)
  Sender: FDA-Public Use
  Company Number: CA-TAKEDA-2022TUS039599

PATIENT
  Age: 72 Year
  Sex: Male

DRUGS (2)
  1. HUMAN IMMUNOGLOBULIN G [Suspect]
     Active Substance: HUMAN IMMUNOGLOBULIN G
     Indication: Secondary immunodeficiency
     Dosage: 8 GRAM, 1/WEEK
     Route: 058
  2. AMOXICILLIN [Concomitant]
     Active Substance: AMOXICILLIN
     Dosage: 500 MILLIGRAM, TID
     Route: 065

REACTIONS (10)
  - Abdominal discomfort [Not Recovered/Not Resolved]
  - Fatigue [Not Recovered/Not Resolved]
  - Gait disturbance [Not Recovered/Not Resolved]
  - Therapeutic product ineffective [Not Recovered/Not Resolved]
  - Infection [Not Recovered/Not Resolved]
  - Joint swelling [Not Recovered/Not Resolved]
  - Malaise [None]
  - Pain [Not Recovered/Not Resolved]
  - Renal disorder [Not Recovered/Not Resolved]
  - Sinusitis [Not Recovered/Not Resolved]
